FAERS Safety Report 7306000-6 (Version None)
Quarter: 2011Q1

REPORT INFORMATION
  Report Type: 
  Country: None (occurrence: None)
  Receive Date: 20110222
  Receipt Date: 20110216
  Transmission Date: 20110831
  Serious: Yes (Hospitalization)
  Sender: FDA-Public Use
  Company Number: AU-GENZYME-CAMP-1000258

PATIENT
  Sex: Female

DRUGS (17)
  1. PHENERGAN [Concomitant]
     Indication: PROPHYLAXIS
     Dosage: 10 MG, QD
     Route: 048
     Dates: start: 20090419, end: 20090420
  2. VENTOLIN [Concomitant]
     Indication: ASTHMA
     Dosage: UNK
     Route: 055
     Dates: start: 19850101
  3. HYDROCORTISONE [Concomitant]
     Indication: PROPHYLAXIS
     Dosage: UNK UNK, UNK
     Route: 065
     Dates: start: 20100503, end: 20100503
  4. ABBICILLIN VT FILM TABS [Concomitant]
     Indication: INFECTION PROPHYLAXIS
     Dosage: 500 MG, QID
     Route: 048
     Dates: start: 20090428, end: 20090508
  5. COVERSYL [Concomitant]
     Indication: HYPERTENSION
     Dosage: 2.5 MG, QD
     Route: 048
     Dates: start: 20070301
  6. TEMAZEPAM [Concomitant]
     Indication: INSOMNIA
     Dosage: 20 MG, QD
     Route: 048
     Dates: start: 20090422, end: 20090423
  7. METHYLPREDNISOLONE [Concomitant]
     Indication: PROPHYLAXIS
     Dosage: 1.0 G, QD
     Dates: start: 20090420, end: 20090421
  8. PANADOL [Concomitant]
     Indication: PROPHYLAXIS
     Dosage: 1000 MG, PRN
     Route: 048
     Dates: start: 20090420
  9. ZYRTEC [Concomitant]
     Indication: PROPHYLAXIS
     Dosage: 10 MG, QD
     Route: 048
     Dates: start: 20090423, end: 20090429
  10. CAMPATH [Suspect]
     Indication: MULTIPLE SCLEROSIS
     Dosage: 24 MG, QD
     Route: 042
     Dates: start: 20090420, end: 20090421
  11. PANADOL [Concomitant]
     Indication: ABDOMINAL PAIN UPPER
  12. ZOLOFT [Concomitant]
     Indication: DEPRESSION
     Dosage: 50 MG, QD
     Route: 048
     Dates: start: 20080701
  13. ONDENSETRONE [Concomitant]
     Indication: PROPHYLAXIS
     Dosage: 8 MG, QD
     Route: 042
     Dates: start: 20090420, end: 20090421
  14. PHENERGAN [Concomitant]
     Dosage: 12.5 MG, QD
     Route: 042
     Dates: start: 20090420, end: 20090421
  15. CAMPATH [Suspect]
     Dosage: 10 MG, QD
     Route: 042
     Dates: start: 20100503, end: 20100503
  16. RANITIDINE [Concomitant]
     Indication: PROPHYLAXIS
     Dosage: 300 MG, BID
     Route: 048
     Dates: start: 20090419, end: 20090429
  17. VALTREX [Concomitant]
     Indication: PROPHYLAXIS
     Dosage: 500 MG, BID
     Route: 048
     Dates: start: 20090423

REACTIONS (1)
  - GASTRITIS [None]
